FAERS Safety Report 10231514 (Version 2)
Quarter: 2014Q2

REPORT INFORMATION
  Report Type: Spontaneous
  Country: US (occurrence: US)
  Receive Date: 20140611
  Receipt Date: 20140611
  Transmission Date: 20141212
  Serious: No
  Sender: FDA-Public Use
  Company Number: US-MYLANLABS-2013S1023900

PATIENT
  Age: 68 Year
  Sex: Male
  Weight: 79.38 kg

DRUGS (4)
  1. VALACYCLOVIR TABLETS [Suspect]
     Indication: HERPES VIRUS INFECTION
     Route: 048
     Dates: start: 20130818, end: 20131013
  2. VALACYCLOVIR TABLETS [Suspect]
     Indication: HERPES VIRUS INFECTION
     Route: 048
     Dates: start: 20131014, end: 20131023
  3. FINASTERIDE [Concomitant]
     Dates: start: 2012
  4. ADVIL [Concomitant]

REACTIONS (2)
  - Drug ineffective [Recovered/Resolved]
  - Herpes virus infection [Recovered/Resolved]
